FAERS Safety Report 9438800 (Version 1)
Quarter: 2013Q3

REPORT INFORMATION
  Report Type: Spontaneous
  Country: FR (occurrence: FR)
  Receive Date: 20130802
  Receipt Date: 20130802
  Transmission Date: 20140515
  Serious: Yes (Life-Threatening, Hospitalization)
  Sender: FDA-Public Use
  Company Number: FR-ASTRAZENECA-2013SE59463

PATIENT
  Age: 28 Year
  Sex: Male

DRUGS (3)
  1. XEROQUEL [Suspect]
     Indication: BIPOLAR DISORDER
     Route: 048
     Dates: start: 20130612, end: 20130628
  2. LAMICTAL [Suspect]
     Indication: BIPOLAR DISORDER
     Route: 048
     Dates: start: 20130612, end: 20130628
  3. SERESTA [Concomitant]
     Indication: BIPOLAR DISORDER
     Route: 048
     Dates: start: 20130612, end: 20130628

REACTIONS (3)
  - Rash maculo-papular [Recovering/Resolving]
  - Stevens-Johnson syndrome [Recovering/Resolving]
  - Dermatitis exfoliative [Recovering/Resolving]
